FAERS Safety Report 17840509 (Version 1)
Quarter: 2020Q2

REPORT INFORMATION
  Report Type: Report from Study
  Country: CA (occurrence: CA)
  Receive Date: 20200529
  Receipt Date: 20200529
  Transmission Date: 20200714
  Serious: Yes (Other)
  Sender: FDA-Public Use
  Company Number: CA-AMGEN-CANSL2020082806

PATIENT
  Age: 56 Year
  Sex: Male

DRUGS (12)
  1. ENBREL [Suspect]
     Active Substance: ETANERCEPT
     Dosage: 50 MILLIGRAM, QWK
     Route: 058
  2. ENBREL [Suspect]
     Active Substance: ETANERCEPT
     Indication: ANKYLOSING SPONDYLITIS
     Dosage: 50 MILLIGRAM, QWK
     Route: 058
     Dates: start: 20030922, end: 20060223
  3. APO INDOMETHACIN [Concomitant]
     Active Substance: INDOMETHACIN
     Dosage: 50 MILLIGRAM, QD
  4. ATENOLOL. [Concomitant]
     Active Substance: ATENOLOL
     Dosage: 50 MILLIGRAM
     Route: 048
  5. HYDROCHLOORTHIAZIDE [Concomitant]
     Active Substance: HYDROCHLOROTHIAZIDE
     Dosage: 25 MILLIGRAM
     Route: 048
  6. TYLENOL [Concomitant]
     Active Substance: ACETAMINOPHEN
  7. LOSEC [Concomitant]
     Active Substance: OMEPRAZOLE
     Dosage: 20 MILLIGRAM, QD
  8. RATIO-INDOMETHACIN [Concomitant]
     Dosage: 100 MILLIGRAM, QD
  9. ZYLOPRIM [Concomitant]
     Active Substance: ALLOPURINOL
     Dosage: 200 MILLIGRAM
  10. ACCEL AMLODIPINE [Concomitant]
     Dosage: 5 MILLIGRAM
  11. ENBREL [Suspect]
     Active Substance: ETANERCEPT
     Dosage: 50 MILLIGRAM, QWK
     Route: 058
     Dates: start: 2006
  12. OLMESARTAN MEDOXOMIL. [Concomitant]
     Active Substance: OLMESARTAN MEDOXOMIL
     Dosage: 20 MILLIGRAM
     Route: 048

REACTIONS (8)
  - Hepatic steatosis [Unknown]
  - Renal cell carcinoma [Unknown]
  - Gout [Unknown]
  - Ankylosing spondylitis [Recovering/Resolving]
  - Nephrolithiasis [Unknown]
  - Sleep apnoea syndrome [Unknown]
  - Renal failure [Unknown]
  - Osteoarthritis [Unknown]

NARRATIVE: CASE EVENT DATE: 200903
